FAERS Safety Report 4300766-5 (Version None)
Quarter: 2004Q1

REPORT INFORMATION
  Report Type: 
  Country: None (occurrence: None)
  Receive Date: 20040218
  Receipt Date: 20040205
  Transmission Date: 20041129
  Serious: Yes (Hospitalization, Other)
  Sender: FDA-Public Use
  Company Number: US-JNJFOC-20030602129

PATIENT
  Age: 63 Year
  Sex: Male
  Weight: 104.3273 kg

DRUGS (6)
  1. REMICADE [Suspect]
     Indication: RHEUMATOID ARTHRITIS
     Dosage: 300 MG
     Dates: start: 20001114
  2. REMICADE [Suspect]
     Indication: RHEUMATOID ARTHRITIS
     Dosage: 300 MG
     Dates: start: 20001128
  3. REMICADE [Suspect]
     Indication: RHEUMATOID ARTHRITIS
     Dosage: 300 MG
     Dates: start: 20001226
  4. MINOCYCLINE HCL [Concomitant]
     Indication: RHEUMATOID ARTHRITIS
     Dosage: 200 MG, 3 IN 3 WEEK
     Dates: start: 19991029, end: 20010206
  5. ZANTAC [Concomitant]
  6. IBUPROFEN [Concomitant]

REACTIONS (20)
  - ASTHENIA [None]
  - CHEST PAIN [None]
  - CHEST X-RAY ABNORMAL [None]
  - CONDITION AGGRAVATED [None]
  - CRYPTOGENIC ORGANIZING PNEUMONIA [None]
  - EMPHYSEMA [None]
  - FACIAL PALSY [None]
  - FATIGUE [None]
  - FEELING ABNORMAL [None]
  - GASTRITIS [None]
  - HERPES ZOSTER [None]
  - JOINT STIFFNESS [None]
  - KERATITIS HERPETIC [None]
  - MYCOBACTERIUM AVIUM COMPLEX INFECTION [None]
  - OESOPHAGITIS [None]
  - ORAL CANDIDIASIS [None]
  - PERICARDITIS [None]
  - PROSTATIC SPECIFIC ANTIGEN INCREASED [None]
  - PULMONARY MASS [None]
  - REFUSAL OF TREATMENT BY PATIENT [None]
